FAERS Safety Report 12438067 (Version 1)
Quarter: 2016Q2

REPORT INFORMATION
  Report Type: Spontaneous
  Country: CA (occurrence: CA)
  Receive Date: 20160606
  Receipt Date: 20160606
  Transmission Date: 20160815
  Serious: Yes (Other)
  Sender: FDA-Public Use
  Company Number: CA-GILEAD-2016-0215653

PATIENT
  Age: 50 Year
  Sex: Male

DRUGS (4)
  1. RALTEGRAVIR. [Concomitant]
     Active Substance: RALTEGRAVIR
     Indication: HIV INFECTION
  2. HARVONI [Suspect]
     Active Substance: LEDIPASVIR\SOFOSBUVIR
     Indication: HEPATITIS C
     Route: 065
  3. LOPINAVIR + RITONAVIR [Interacting]
     Active Substance: LOPINAVIR\RITONAVIR
     Indication: HIV INFECTION
     Route: 065
  4. MARAVIROC [Concomitant]
     Active Substance: MARAVIROC
     Indication: HIV INFECTION

REACTIONS (6)
  - Nausea [Recovered/Resolved]
  - Blood bilirubin increased [Recovered/Resolved]
  - Drug interaction [Unknown]
  - Constipation [Recovered/Resolved]
  - Drug-induced liver injury [Unknown]
  - Dizziness [Recovered/Resolved]
